FAERS Safety Report 9656386 (Version 2)
Quarter: 2014Q1

REPORT INFORMATION
  Report Type: Spontaneous
  Country: RO (occurrence: RO)
  Receive Date: 20131030
  Receipt Date: 20140205
  Transmission Date: 20141002
  Serious: Yes (Hospitalization, Other)
  Sender: FDA-Public Use
  Company Number: RO-UCBSA-101645

PATIENT
  Age: 37 Year
  Sex: Female
  Weight: 49 kg

DRUGS (5)
  1. CIMZIA [Suspect]
     Indication: RHEUMATOID ARTHRITIS
     Dosage: UNKNOWN DOSE
     Dates: start: 20120803, end: 20131005
  2. METHOTREXATE [Concomitant]
     Dosage: FREQUENCY: QS
     Route: 058
  3. ISONIAZIDE [Concomitant]
     Indication: TUBERCULOSIS
     Dates: start: 20131020
  4. ETHAMBUTOL [Concomitant]
     Indication: TUBERCULOSIS
     Dates: start: 20131020
  5. PIRAZINAMIDE [Concomitant]
     Indication: TUBERCULOSIS
     Dates: start: 20131020

REACTIONS (2)
  - Tuberculosis [Recovering/Resolving]
  - Cholestasis [Unknown]
